FAERS Safety Report 10060511 (Version 2)
Quarter: 2014Q2

REPORT INFORMATION
  Report Type: Spontaneous
  Country: US (occurrence: US)
  Receive Date: 20140404
  Receipt Date: 20140404
  Transmission Date: 20141212
  Serious: No
  Sender: FDA-Public Use
  Company Number: US-009507513-1403USA005330

PATIENT
  Sex: Female
  Weight: 76.64 kg

DRUGS (4)
  1. OXYTROL FOR WOMEN [Suspect]
     Indication: HYPERTONIC BLADDER
     Dosage: UNK, UNKNOWN
     Route: 062
     Dates: start: 20140212, end: 20140316
  2. OXYTROL FOR WOMEN [Suspect]
     Indication: BLADDER DISORDER
  3. OXYTROL FOR WOMEN [Suspect]
     Indication: IRRITABLE BOWEL SYNDROME
  4. OXYBUTYNIN [Concomitant]
     Indication: PRODUCT USED FOR UNKNOWN INDICATION
     Dosage: UNK, UNKNOWN

REACTIONS (7)
  - Urinary tract infection [Unknown]
  - Vulvovaginal discomfort [Unknown]
  - Exposure during pregnancy [Unknown]
  - Overdose [Unknown]
  - Off label use [Unknown]
  - Drug effect decreased [Unknown]
  - Product adhesion issue [Unknown]
